FAERS Safety Report 5843522-9 (Version None)
Quarter: 2008Q3

REPORT INFORMATION
  Report Type: 
  Country: None (occurrence: None)
  Receive Date: 20080812
  Receipt Date: 20080812
  Transmission Date: 20090109
  Serious: Yes (Hospitalization)
  Sender: FDA-Public Use
  Company Number: None

PATIENT
  Sex: Female
  Weight: 75.6 kg

DRUGS (3)
  1. CARBOPLATIN [Suspect]
     Dosage: 728 MG
  2. TAXOL [Suspect]
     Dosage: 292 MG
  3. NEULASTA [Suspect]
     Dosage: 6 MG

REACTIONS (15)
  - ABDOMINAL ABSCESS [None]
  - BACTERIAL INFECTION [None]
  - DEHYDRATION [None]
  - ERYTHEMA [None]
  - INCISION SITE ABSCESS [None]
  - INTRA-ABDOMINAL HAEMORRHAGE [None]
  - NAUSEA [None]
  - SPEECH DISORDER [None]
  - SUBCUTANEOUS ABSCESS [None]
  - SYNCOPE [None]
  - SYNCOPE VASOVAGAL [None]
  - TACHYCARDIA [None]
  - TENDERNESS [None]
  - VAGINAL DISCHARGE [None]
  - WEIGHT DECREASED [None]
